FAERS Safety Report 13446773 (Version 2)
Quarter: 2017Q2

REPORT INFORMATION
  Report Type: Spontaneous
  Country: BG (occurrence: BG)
  Receive Date: 20170417
  Receipt Date: 20170419
  Transmission Date: 20170830
  Serious: Yes (Other)
  Sender: FDA-Public Use
  Company Number: BG-009507513-1704BGR003940

PATIENT
  Age: 67 Year
  Sex: Female

DRUGS (7)
  1. AERIUS [Suspect]
     Active Substance: DESLORATADINE
     Indication: RHINITIS ALLERGIC
     Dosage: UNK
     Route: 048
     Dates: start: 20170409, end: 20170409
  2. LEVOCETIRIZINE [Suspect]
     Active Substance: LEVOCETIRIZINE
     Indication: URTICARIA
     Dosage: UNK
     Dates: start: 2017, end: 2017
  3. PROPAFENONE HCL [Concomitant]
     Active Substance: PROPAFENONE HYDROCHLORIDE
     Indication: CARDIAC DISORDER
     Dosage: UNK
  4. XALATAN [Concomitant]
     Active Substance: LATANOPROST
     Indication: GLAUCOMA
     Dosage: 1 DROP, UNK
  5. AERIUS [Suspect]
     Active Substance: DESLORATADINE
     Indication: URTICARIA
     Dosage: UNK
     Route: 048
     Dates: start: 2017, end: 2017
  6. LEVOCETIRIZINE [Suspect]
     Active Substance: LEVOCETIRIZINE
     Indication: RHINITIS ALLERGIC
  7. BISOGAMMA [Concomitant]
     Active Substance: BISOPROLOL FUMARATE
     Indication: CARDIAC DISORDER

REACTIONS (3)
  - Urticaria [Recovered/Resolved]
  - Arrhythmia [Recovered/Resolved]
  - Rhinitis allergic [Recovered/Resolved]

NARRATIVE: CASE EVENT DATE: 2017
